FAERS Safety Report 21106055 (Version 2)
Quarter: 2022Q4

REPORT INFORMATION
  Report Type: Report from Study
  Country: US (occurrence: US)
  Receive Date: 20220720
  Receipt Date: 20221109
  Transmission Date: 20230112
  Serious: Yes (Hospitalization, Other)
  Sender: FDA-Public Use
  Company Number: US-BRISTOL-MYERS SQUIBB COMPANY-2022-075755

PATIENT
  Age: 60 Year
  Sex: Male
  Weight: 82.7 kg

DRUGS (7)
  1. NIVOLUMAB [Suspect]
     Active Substance: NIVOLUMAB
     Indication: Bladder cancer
     Route: 042
     Dates: start: 20210622, end: 20210824
  2. NIVOLUMAB [Suspect]
     Active Substance: NIVOLUMAB
     Route: 042
     Dates: start: 20210831
  3. NIVOLUMAB [Suspect]
     Active Substance: NIVOLUMAB
     Route: 042
     Dates: start: 20211019, end: 20211019
  4. IPILIMUMAB [Suspect]
     Active Substance: IPILIMUMAB
     Indication: Bladder cancer
     Route: 065
     Dates: start: 20210622, end: 20210824
  5. CABOZANTINIB [Suspect]
     Active Substance: CABOZANTINIB
     Indication: Bladder cancer
     Route: 048
     Dates: start: 20210622, end: 20210824
  6. CABOZANTINIB [Suspect]
     Active Substance: CABOZANTINIB
     Route: 065
     Dates: start: 20210831
  7. CABOZANTINIB [Suspect]
     Active Substance: CABOZANTINIB
     Route: 048
     Dates: start: 20211019, end: 20211019

REACTIONS (1)
  - Cerebrovascular accident [Recovered/Resolved with Sequelae]

NARRATIVE: CASE EVENT DATE: 20211020
